FAERS Safety Report 8820510 (Version 1)
Quarter: 2012Q4

REPORT INFORMATION
  Report Type: 
  Country: US (occurrence: US)
  Receive Date: 20121002
  Receipt Date: 20121002
  Transmission Date: 20130627
  Serious: Yes (Other)
  Sender: FDA-Public Use
  Company Number: US-COVIDIEN/TYCO HEALTHCARE/MALLINCKRODT-T201203440

PATIENT
  Sex: Male

DRUGS (4)
  1. EXALGO EXTENDED RELEASE [Suspect]
     Indication: BREAKTHROUGH PAIN
     Dosage: 8 mg, qd
     Route: 048
     Dates: start: 201207, end: 201207
  2. BUTRANS                            /00444001/ [Concomitant]
     Dosage: 5 ug/hr, UNK
     Dates: start: 201201, end: 201207
  3. PERCOCET /00867901/ [Concomitant]
     Dosage: 5/325, mg, tid
     Dates: start: 201201
  4. SEROQUEL [Concomitant]
     Dosage: UNK

REACTIONS (1)
  - Respiratory depression [Recovered/Resolved]
